FAERS Safety Report 22041542 (Version 1)
Quarter: 2023Q1

REPORT INFORMATION
  Report Type: Spontaneous
  Country: PR (occurrence: PR)
  Receive Date: 20230227
  Receipt Date: 20230227
  Transmission Date: 20230417
  Serious: No
  Sender: FDA-Public Use
  Company Number: PR-PFIZER INC-PV202300033829

PATIENT
  Age: 12 Year
  Sex: Male

DRUGS (1)
  1. GENOTROPIN [Suspect]
     Active Substance: SOMATROPIN
     Dosage: 1 MG (1MG SC 6 TIMES A WEEK)
     Route: 058
     Dates: start: 20230220

REACTIONS (1)
  - Injection site pain [Unknown]
